FAERS Safety Report 4724406-6 (Version None)
Quarter: 2005Q3

REPORT INFORMATION
  Report Type: 
  Country: None (occurrence: None)
  Receive Date: 20050721
  Receipt Date: 20050711
  Transmission Date: 20060218
  Serious: Yes (Hospitalization)
  Sender: FDA-Public Use
  Company Number: B0387470A

PATIENT
  Age: 32 Year
  Sex: Male

DRUGS (1)
  1. LITHIUM CARBONATE [Suspect]
     Dosage: 400 MG

REACTIONS (5)
  - BLOOD PRESSURE SYSTOLIC INCREASED [None]
  - HAEMODIALYSIS [None]
  - INTENTIONAL MISUSE [None]
  - OVERDOSE [None]
  - THERAPEUTIC AGENT TOXICITY [None]
